FAERS Safety Report 11098296 (Version 1)
Quarter: 2015Q2

REPORT INFORMATION
  Report Type: Spontaneous
  Country: FR (occurrence: FR)
  Receive Date: 20150507
  Receipt Date: 20150507
  Transmission Date: 20150821
  Serious: Yes (Hospitalization, Other)
  Sender: FDA-Public Use
  Company Number: FR-PFIZER INC-2015148540

PATIENT
  Age: 89 Year
  Sex: Female

DRUGS (10)
  1. NEURONTIN [Suspect]
     Active Substance: GABAPENTIN
     Dosage: 400 MG, DAILY
     Route: 048
     Dates: start: 20150330, end: 20150330
  2. SKENAN [Suspect]
     Active Substance: MORPHINE SULFATE
     Dosage: 20 MG, SINGLE
     Route: 048
     Dates: start: 20150410, end: 20150410
  3. DEPAKINE [Concomitant]
     Active Substance: VALPROATE SODIUM
     Indication: EPILEPSY
     Dosage: 1 G, DAILY
     Route: 048
     Dates: end: 20150410
  4. NEURONTIN [Suspect]
     Active Substance: GABAPENTIN
     Dosage: 600 MG, DAILY
     Route: 048
     Dates: start: 20150330, end: 20150410
  5. LAROXYL [Concomitant]
     Active Substance: AMITRIPTYLINE
     Dosage: UNK
     Route: 048
     Dates: start: 20150401, end: 20150408
  6. ACUPAN [Concomitant]
     Active Substance: NEFOPAM HYDROCHLORIDE
     Dosage: UNK
     Dates: start: 20150405, end: 20150407
  7. DAFALGAN [Concomitant]
     Active Substance: ACETAMINOPHEN
     Dosage: 3 G, DAILY
     Dates: start: 20150324
  8. TOPALGIC [Concomitant]
     Active Substance: TRAMADOL
     Indication: NEURALGIA
     Dosage: UNK
     Route: 048
     Dates: start: 20150324, end: 20150410
  9. LOVENOX [Concomitant]
     Active Substance: ENOXAPARIN SODIUM
     Dosage: UNK
     Dates: end: 20150410
  10. DAFALGAN [Concomitant]
     Active Substance: ACETAMINOPHEN
     Dosage: 1 G, DAILY
     Dates: end: 20150410

REACTIONS (8)
  - Cell death [Recovered/Resolved]
  - Cholestasis [Recovering/Resolving]
  - Pyrexia [Unknown]
  - Medication error [Recovered/Resolved]
  - Lipase increased [Recovered/Resolved]
  - Sphincter of Oddi dysfunction [Recovering/Resolving]
  - Hepatocellular injury [Recovered/Resolved]
  - Transaminases increased [Recovered/Resolved]

NARRATIVE: CASE EVENT DATE: 20150410
